FAERS Safety Report 7762355-X (Version None)
Quarter: 2011Q3

REPORT INFORMATION
  Report Type: 
  Country: None (occurrence: None)
  Receive Date: 20110920
  Receipt Date: 20110907
  Transmission Date: 20111222
  Serious: No
  Sender: FDA-Public Use
  Company Number: US-B.I. PHARMACEUTICALS,INC./RIDGEFIELD-2011-BP-21713BP

PATIENT
  Sex: Female

DRUGS (7)
  1. LEXAPRO [Concomitant]
  2. QVAR 40 [Concomitant]
     Route: 055
  3. ESTROGENIC SUBSTANCE [Concomitant]
  4. CLONAZEPAM [Concomitant]
  5. METHOTREXATE [Concomitant]
  6. GABAPENTIN [Concomitant]
  7. SPIRIVA [Suspect]
     Indication: CHRONIC OBSTRUCTIVE PULMONARY DISEASE
     Route: 055
     Dates: start: 20080601

REACTIONS (1)
  - DYSPNOEA [None]
